FAERS Safety Report 4665403-9 (Version None)
Quarter: 2005Q2

REPORT INFORMATION
  Report Type: 
  Country: None (occurrence: None)
  Receive Date: 20050518
  Receipt Date: 20050518
  Transmission Date: 20051028
  Serious: Yes (Life-Threatening, Other)
  Sender: FDA-Public Use
  Company Number: None

PATIENT
  Sex: Male
  Weight: 41.5041 kg

DRUGS (3)
  1. CEPHALEXIN [Suspect]
     Indication: INGROWING NAIL
     Dosage: 250 MG Q ID PO [ONLY 2 DOSES]
     Route: 048
     Dates: start: 20050413
  2. CEPHALEXIN [Suspect]
     Indication: NAIL INFECTION
     Dosage: 250 MG Q ID PO [ONLY 2 DOSES]
     Route: 048
     Dates: start: 20050413
  3. BUPROPION HCL [Suspect]
     Indication: DEPRESSION
     Dosage: 150 MG DAILY PO [DISCHARGED ON IT]
     Route: 048
     Dates: start: 20050408, end: 20050428

REACTIONS (9)
  - BLOOD PRESSURE INCREASED [None]
  - DIARRHOEA [None]
  - HEADACHE [None]
  - HEART RATE INCREASED [None]
  - MUSCLE SPASMS [None]
  - ORAL INTAKE REDUCED [None]
  - RESPIRATORY RATE INCREASED [None]
  - TREMOR [None]
  - VISION BLURRED [None]
